FAERS Safety Report 8450540-3 (Version None)
Quarter: 2012Q2

REPORT INFORMATION
  Report Type: 
  Country: None (occurrence: None)
  Receive Date: 20120620
  Receipt Date: 20120611
  Transmission Date: 20120825
  Serious: Yes (Other)
  Sender: FDA-Public Use
  Company Number: US-ASTRAZENECA-2012SE38952

PATIENT
  Age: 48 Year
  Sex: Female
  Weight: 99.8 kg

DRUGS (12)
  1. NEXIUM [Suspect]
     Indication: DYSPEPSIA
     Route: 048
  2. NEXIUM [Suspect]
     Route: 048
     Dates: start: 20120101
  3. LEVOTHYROXINE SODIUM [Concomitant]
  4. CALCIUM [Concomitant]
  5. FIBER [Concomitant]
  6. NEXIUM [Suspect]
     Dosage: QOD
     Route: 048
     Dates: start: 20120101
  7. SINGULAIR [Concomitant]
  8. FLUOXETINE [Concomitant]
  9. MULTI-VITAMINS [Concomitant]
  10. CLARITIN [Concomitant]
  11. VITAMIN B3 [Concomitant]
  12. FISHOIL [Concomitant]

REACTIONS (3)
  - THYROID NEOPLASM [None]
  - DYSPEPSIA [None]
  - CIRCUMSTANCE OR INFORMATION CAPABLE OF LEADING TO MEDICATION ERROR [None]
